FAERS Safety Report 10213121 (Version 2)
Quarter: 2014Q3

REPORT INFORMATION
  Report Type: Spontaneous
  Country: US (occurrence: US)
  Receive Date: 20140603
  Receipt Date: 20140716
  Transmission Date: 20150326
  Serious: No
  Sender: FDA-Public Use
  Company Number: US-009507513-1405USA012022

PATIENT
  Age: 35 Year
  Sex: Female
  Weight: 81.63 kg

DRUGS (1)
  1. NEXPLANON [Suspect]
     Active Substance: ETONOGESTREL
     Indication: MIGRAINE
     Dosage: 1 ROD, UNK
     Route: 059
     Dates: start: 20140416

REACTIONS (4)
  - Migraine [Not Recovered/Not Resolved]
  - Drug administration error [Unknown]
  - Depression [Unknown]
  - Drug ineffective for unapproved indication [Unknown]

NARRATIVE: CASE EVENT DATE: 2014
